FAERS Safety Report 8135955-5 (Version None)
Quarter: 2012Q1

REPORT INFORMATION
  Report Type: 
  Country: None (occurrence: None)
  Receive Date: 20120209
  Receipt Date: 20120203
  Transmission Date: 20120608
  Serious: Yes (Hospitalization, Other)
  Sender: FDA-Public Use
  Company Number: 2009-200460-NL

PATIENT
  Age: 39 Year
  Sex: Female
  Weight: 79.3795 kg

DRUGS (7)
  1. TOPAMAX [Concomitant]
  2. PRILOSEC [Concomitant]
  3. CLARITIN [Concomitant]
  4. ZOLOFT [Concomitant]
  5. NUVARING [Suspect]
     Indication: CONTRACEPTION
     Dosage: QM;VAG
     Route: 067
     Dates: start: 20071218, end: 20080801
  6. NUVARING [Suspect]
     Indication: MENORRHAGIA
     Dosage: QM;VAG
     Route: 067
     Dates: start: 20071218, end: 20080801
  7. NUVARING [Suspect]
     Indication: PREMENSTRUAL SYNDROME
     Dosage: QM;VAG
     Route: 067
     Dates: start: 20071218, end: 20080801

REACTIONS (40)
  - DYSPHORIA [None]
  - SLEEP APNOEA SYNDROME [None]
  - MYALGIA [None]
  - NEPHROLITHIASIS [None]
  - ANXIETY [None]
  - VIITH NERVE PARALYSIS [None]
  - PHOTOPHOBIA [None]
  - DYSURIA [None]
  - ANGER [None]
  - PAIN IN EXTREMITY [None]
  - OEDEMA PERIPHERAL [None]
  - TIC [None]
  - MYOPIA [None]
  - ASTHENIA [None]
  - DRUG EFFECT DECREASED [None]
  - DEPRESSED MOOD [None]
  - THROMBOPHLEBITIS [None]
  - VOMITING [None]
  - CHEST PAIN [None]
  - BARTHOLIN'S CYST [None]
  - VULVAL DISORDER [None]
  - FATIGUE [None]
  - PRESBYOPIA [None]
  - DRY EYE [None]
  - MUSCLE TIGHTNESS [None]
  - NAUSEA [None]
  - MENORRHAGIA [None]
  - BORDERLINE GLAUCOMA [None]
  - PALPITATIONS [None]
  - FRUSTRATION [None]
  - PREMENSTRUAL SYNDROME [None]
  - HEADACHE [None]
  - HAEMATURIA [None]
  - PRODUCT SUBSTITUTION ISSUE [None]
  - DEEP VEIN THROMBOSIS [None]
  - HYPOAESTHESIA [None]
  - DEPRESSION [None]
  - HYPOTHYROIDISM [None]
  - MIGRAINE [None]
  - HOT FLUSH [None]
